FAERS Safety Report 7515793-4 (Version None)
Quarter: 2011Q2

REPORT INFORMATION
  Report Type: 
  Country: None (occurrence: None)
  Receive Date: 20110601
  Receipt Date: 20110525
  Transmission Date: 20111010
  Serious: No
  Sender: FDA-Public Use
  Company Number: US-PFIZER INC-2011113501

PATIENT
  Sex: Male

DRUGS (9)
  1. FUROSEMIDE [Concomitant]
     Indication: BLOOD PRESSURE
     Dosage: 20 MG, UNK
  2. CARVEDILOL [Concomitant]
     Indication: BLOOD PRESSURE
     Dosage: 25 MG, UNK
  3. NEXIUM [Concomitant]
     Indication: GASTRIC DISORDER
     Dosage: 40 MG, UNK
  4. PROCRIT [Concomitant]
     Indication: ANAEMIA
  5. PROCRIT [Concomitant]
     Indication: MYELODYSPLASTIC SYNDROME
  6. CELEBREX [Suspect]
     Indication: ARTHRITIS
     Dosage: 200 MG, 1X/DAY
     Route: 048
     Dates: start: 20100101
  7. LISINOPRIL [Concomitant]
     Indication: BLOOD PRESSURE
     Dosage: 40 MG, UNK
  8. TRAVATAN [Concomitant]
     Indication: GLAUCOMA
  9. VICODIN [Concomitant]
     Indication: PAIN
     Dosage: 500 MG, UNK

REACTIONS (1)
  - PETECHIAE [None]
